FAERS Safety Report 4374132-0 (Version None)
Quarter: 2004Q2

REPORT INFORMATION
  Report Type: 
  Country: None (occurrence: None)
  Receive Date: 20040609
  Receipt Date: 20040511
  Transmission Date: 20050107
  Serious: Yes (Death, Hospitalization)
  Sender: FDA-Public Use
  Company Number: 200411911FR

PATIENT
  Age: 79 Year
  Sex: Female

DRUGS (7)
  1. BIRODOGYL [Suspect]
     Indication: ORAL INFECTION
     Route: 048
     Dates: start: 20040226
  2. TIMOPTIC [Suspect]
     Indication: CATARACT
     Dosage: ROUTE: CONJUNCTIVAL, RETROBULBAR
     Route: 050
  3. VEXOL [Suspect]
     Indication: CATARACT
     Dosage: ROUTE: CONJUNCTIVAL, RETROBULBAR
     Route: 050
  4. HYZAAR [Suspect]
     Indication: HYPERTENSION
     Route: 048
  5. ZANIDIP [Suspect]
     Indication: HYPERTENSION
     Route: 048
  6. NEXEN [Suspect]
     Route: 048
  7. VEYBIROL-TYROTHRICINE [Concomitant]
     Indication: ORAL INFECTION
     Route: 002

REACTIONS (24)
  - ANOREXIA [None]
  - ASTHENIA [None]
  - COAGULATION FACTOR V LEVEL DECREASED [None]
  - COMA [None]
  - DISSEMINATED INTRAVASCULAR COAGULATION [None]
  - GAMMA-GLUTAMYLTRANSFERASE INCREASED [None]
  - HAEMODIALYSIS [None]
  - HYPOCALCAEMIA [None]
  - HYPOKALAEMIA [None]
  - HYPONATRAEMIA [None]
  - HYPOPROTEINAEMIA [None]
  - HYPOTENSION [None]
  - HYPOXIA [None]
  - INFECTION [None]
  - IRON DEFICIENCY ANAEMIA [None]
  - LABORATORY TEST ABNORMAL [None]
  - MULTI-ORGAN FAILURE [None]
  - NERVOUS SYSTEM DISORDER [None]
  - PROTHROMBIN LEVEL DECREASED [None]
  - PURPURA [None]
  - RENAL FAILURE [None]
  - TACHYCARDIA [None]
  - THROMBOCYTOPENIA [None]
  - VOMITING [None]
